FAERS Safety Report 26111767 (Version 1)
Quarter: 2025Q4

REPORT INFORMATION
  Report Type: Report from Study
  Country: EU (occurrence: EU)
  Receive Date: 20251202
  Receipt Date: 20251202
  Transmission Date: 20260117
  Serious: Yes (Other)
  Sender: ROCHE
  Company Number: EU-ROCHE-10000429438

PATIENT
  Age: 82 Year
  Sex: Female
  Weight: 58 kg

DRUGS (3)
  1. VABYSMO [Suspect]
     Active Substance: FARICIMAB-SVOA
     Indication: Neovascular age-related macular degeneration
     Dosage: ON 05-FEB-2025, SHE RECEIVED HER MOST RECENT DOSE OF FARICIMAB PRIOR TO AE.
     Route: 050
     Dates: start: 20241122
  2. VABYSMO [Suspect]
     Active Substance: FARICIMAB-SVOA
     Route: 050
  3. RAMIPRIL [Concomitant]
     Active Substance: RAMIPRIL
     Dosage: 2,5 MG BIDAILY

REACTIONS (1)
  - Cholecystitis chronic [Recovered/Resolved]

NARRATIVE: CASE EVENT DATE: 20250101
